FAERS Safety Report 9171987 (Version 2)
Quarter: 2013Q1

REPORT INFORMATION
  Report Type: Spontaneous
  Country: JP (occurrence: JP)
  Receive Date: 20130319
  Receipt Date: 20130329
  Transmission Date: 20140127
  Serious: Yes (Other)
  Sender: FDA-Public Use
  Company Number: JP-PFIZER INC-2013085220

PATIENT
  Age: 69 Year
  Sex: Male

DRUGS (2)
  1. METHYLPREDNISOLONE [Suspect]
     Dosage: UNK
  2. PREDNISOLONE [Suspect]
     Dosage: 40 MG/DAY

REACTIONS (2)
  - Water intoxication [Unknown]
  - Disorientation [Unknown]
